FAERS Safety Report 20612822 (Version 2)
Quarter: 2022Q2

REPORT INFORMATION
  Report Type: Spontaneous
  Country: IT (occurrence: IT)
  Receive Date: 20220318
  Receipt Date: 20220401
  Transmission Date: 20220720
  Serious: Yes (Other)
  Sender: FDA-Public Use
  Company Number: IT-ALLERGAN-2209013US

PATIENT
  Sex: Female

DRUGS (1)
  1. URSODIOL [Suspect]
     Active Substance: URSODIOL
     Indication: Autoimmune hepatitis
     Dosage: 675 MG, QD

REACTIONS (3)
  - Abortion spontaneous [Unknown]
  - Pregnancy [Unknown]
  - Off label use [Unknown]
